FAERS Safety Report 14540748 (Version 1)
Quarter: 2018Q1

REPORT INFORMATION
  Report Type: Spontaneous
  Country: FR (occurrence: FR)
  Receive Date: 20180216
  Receipt Date: 20180216
  Transmission Date: 20180509
  Serious: Yes (Hospitalization)
  Sender: FDA-Public Use
  Company Number: FR-OTSUKA-DJ20060595

PATIENT

DRUGS (12)
  1. ZOPICLONE [Concomitant]
     Active Substance: ZOPICLONE
     Route: 065
     Dates: start: 20060103
  2. ABILIFY [Suspect]
     Active Substance: ARIPIPRAZOLE
     Indication: DELIRIUM
     Route: 048
     Dates: start: 20051017, end: 20051108
  3. LOXAPAC [Suspect]
     Active Substance: LOXAPINE
     Route: 065
     Dates: start: 20060103
  4. TERCIAN [Suspect]
     Active Substance: CYAMEMAZINE
     Route: 065
     Dates: start: 20060103
  5. ZUCLOPENTHIXOL DI-HYDROCHLORIDE [Concomitant]
     Route: 065
     Dates: start: 20060103
  6. LOXAPAC [Suspect]
     Active Substance: LOXAPINE
     Route: 065
     Dates: start: 20051109
  7. LOXAPAC [Suspect]
     Active Substance: LOXAPINE
     Route: 065
  8. ABILIFY [Suspect]
     Active Substance: ARIPIPRAZOLE
     Indication: DELIRIUM
     Route: 048
     Dates: end: 20060104
  9. ABILIFY [Suspect]
     Active Substance: ARIPIPRAZOLE
     Indication: DELIRIUM
     Route: 048
     Dates: start: 20051109
  10. SERESTA [Suspect]
     Active Substance: OXAZEPAM
     Route: 065
     Dates: start: 20051225, end: 20051225
  11. ABILIFY [Suspect]
     Active Substance: ARIPIPRAZOLE
     Indication: DEPRESSION
  12. ABILIFY [Suspect]
     Active Substance: ARIPIPRAZOLE
     Indication: PATIENT ISOLATION

REACTIONS (5)
  - Delusion [Recovered/Resolved]
  - Agitation [Recovered/Resolved]
  - Hallucination [Recovered/Resolved]
  - Paranoia [Recovered/Resolved]
  - Aggression [Recovered/Resolved]

NARRATIVE: CASE EVENT DATE: 20051109
